FAERS Safety Report 13205999 (Version 1)
Quarter: 2017Q1

REPORT INFORMATION
  Report Type: Spontaneous
  Country: US (occurrence: US)
  Receive Date: 20170209
  Receipt Date: 20170209
  Transmission Date: 20170428
  Serious: No
  Sender: FDA-Public Use
  Company Number: US-BAYER-2017-026761

PATIENT
  Age: 74 Year
  Sex: Male
  Weight: 113 kg

DRUGS (1)
  1. MIRALAX [Suspect]
     Active Substance: POLYETHYLENE GLYCOL 3350
     Route: 048
     Dates: start: 20170208, end: 20170209

REACTIONS (4)
  - Off label use [Unknown]
  - Product use issue [Unknown]
  - Wrong technique in product usage process [None]
  - Product use issue [None]

NARRATIVE: CASE EVENT DATE: 20170208
